FAERS Safety Report 7315895-1 (Version None)
Quarter: 2011Q1

REPORT INFORMATION
  Report Type: 
  Country: None (occurrence: None)
  Receive Date: 20110225
  Receipt Date: 20110216
  Transmission Date: 20110831
  Serious: Yes (Hospitalization)
  Sender: FDA-Public Use
  Company Number: US-JNJFOC-20110103309

PATIENT
  Sex: Female
  Weight: 55.34 kg

DRUGS (2)
  1. REMICADE [Suspect]
     Indication: OSTEOARTHRITIS
     Route: 042
  2. REMICADE [Suspect]
     Indication: RHEUMATOID ARTHRITIS
     Route: 042

REACTIONS (3)
  - DYSPNOEA [None]
  - PULMONARY HYPERTENSION [None]
  - FLUID RETENTION [None]
